FAERS Safety Report 5326027-3 (Version None)
Quarter: 2007Q2

REPORT INFORMATION
  Report Type: 
  Country: None (occurrence: None)
  Receive Date: 20070516
  Receipt Date: 20070427
  Transmission Date: 20071010
  Serious: Yes (Life-Threatening)
  Sender: FDA-Public Use
  Company Number: JP-BRISTOL-MYERS SQUIBB COMPANY-13742820

PATIENT
  Age: 93 Year
  Sex: Female

DRUGS (15)
  1. GATIFLO TABS 100 MG [Suspect]
     Indication: BRONCHITIS
     Route: 048
     Dates: start: 20070323, end: 20070325
  2. GASTER [Concomitant]
     Route: 048
     Dates: end: 20070325
  3. DEPAS [Concomitant]
     Route: 048
     Dates: end: 20070325
  4. SENNOSIDE [Concomitant]
     Dates: end: 20070325
  5. ADALAT [Concomitant]
     Route: 048
     Dates: end: 20070325
  6. LANIRAPID [Concomitant]
     Route: 048
     Dates: end: 20070325
  7. BUFFERIN [Concomitant]
     Route: 048
     Dates: end: 20070321
  8. LASIX [Concomitant]
     Route: 048
     Dates: end: 20070325
  9. OXYBUTYNIN HCL [Concomitant]
     Route: 048
     Dates: end: 20070325
  10. MYONAL [Concomitant]
     Route: 048
     Dates: end: 20070325
  11. MERISLON [Concomitant]
     Route: 048
     Dates: end: 20070325
  12. GLAKAY [Concomitant]
     Route: 048
     Dates: end: 20070325
  13. SOLON [Concomitant]
     Route: 048
     Dates: end: 20070325
  14. NIVADIL [Concomitant]
     Route: 048
     Dates: end: 20070325
  15. CIBENOL [Concomitant]
     Route: 048
     Dates: end: 20070325

REACTIONS (2)
  - HYPOGLYCAEMIA [None]
  - HYPOGLYCAEMIC COMA [None]
